FAERS Safety Report 8259861-0 (Version None)
Quarter: 2012Q2

REPORT INFORMATION
  Report Type: 
  Country: None (occurrence: None)
  Receive Date: 20120404
  Receipt Date: 20120328
  Transmission Date: 20120825
  Serious: Yes (Other)
  Sender: FDA-Public Use
  Company Number: BR-GLAXOSMITHKLINE-A0969712A

PATIENT
  Age: 26 Month

DRUGS (2)
  1. FLUTICASONE FUROATE [Suspect]
     Indication: RHINITIS
     Dosage: 27.5MCG UNKNOWN
     Dates: start: 20120201, end: 20120201
  2. KETOTIFEN FUMARATE [Suspect]
     Indication: PRODUCT USED FOR UNKNOWN INDICATION
     Dates: start: 20120201

REACTIONS (6)
  - PETECHIAE [None]
  - ERYTHEMA [None]
  - AURICULAR SWELLING [None]
  - FACE OEDEMA [None]
  - THROMBOCYTOPENIA [None]
  - PURPURA [None]
